FAERS Safety Report 6306509-8 (Version None)
Quarter: 2009Q3

REPORT INFORMATION
  Report Type: 
  Country: None (occurrence: None)
  Receive Date: 20090812
  Receipt Date: 20090805
  Transmission Date: 20100115
  Serious: Yes (Other)
  Sender: FDA-Public Use
  Company Number: B0588349A

PATIENT
  Age: 62 Year
  Sex: Female

DRUGS (1)
  1. NICABATE CQ CLEAR 21MG [Suspect]
     Route: 062
     Dates: start: 20090624, end: 20090627

REACTIONS (4)
  - APHONIA [None]
  - DYSPNOEA [None]
  - MALAISE [None]
  - PNEUMONIA [None]
